FAERS Safety Report 14069684 (Version 2)
Quarter: 2017Q4

REPORT INFORMATION
  Report Type: Report from Study
  Country: US (occurrence: US)
  Receive Date: 20171010
  Receipt Date: 20171017
  Transmission Date: 20180321
  Serious: Yes (Death)
  Sender: FDA-Public Use
  Company Number: US-EXELIXIS-CABO-17010452

PATIENT
  Age: 66 Year
  Sex: Male

DRUGS (21)
  1. CABOMETYX [Suspect]
     Active Substance: CABOZANTINIB S-MALATE
     Indication: METASTASES TO LUNG
  2. AEROSPHERE [Concomitant]
  3. LEVEMIR [Concomitant]
     Active Substance: INSULIN DETEMIR
  4. COMBIVENT [Concomitant]
     Active Substance: ALBUTEROL SULFATE\IPRATROPIUM BROMIDE
  5. SYNTHROID [Concomitant]
     Active Substance: LEVOTHYROXINE SODIUM
  6. ROCALTROL [Concomitant]
     Active Substance: CALCITRIOL
  7. LASIX [Concomitant]
     Active Substance: FUROSEMIDE
  8. LOMOTIL [Concomitant]
     Active Substance: ATROPINE SULFATE\DIPHENOXYLATE HYDROCHLORIDE
  9. CARDURA [Concomitant]
     Active Substance: DOXAZOSIN MESYLATE
  10. TUSSIN [Concomitant]
     Active Substance: GUAIFENESIN
  11. XYZAL [Concomitant]
     Active Substance: LEVOCETIRIZINE DIHYDROCHLORIDE
  12. IRON [Concomitant]
     Active Substance: IRON
  13. PROCARDIA [Concomitant]
     Active Substance: NIFEDIPINE
  14. PROBIOTIC [Concomitant]
     Active Substance: PROBIOTICS NOS
  15. CABOMETYX [Suspect]
     Active Substance: CABOZANTINIB S-MALATE
     Indication: RENAL CANCER
     Dosage: 60 MG, QD
     Route: 048
     Dates: start: 20170826, end: 2017
  16. ROBITUSSIN (GUAIFENESIN) [Concomitant]
     Active Substance: GUAIFENESIN
  17. NASACORT [Concomitant]
     Active Substance: TRIAMCINOLONE ACETONIDE
  18. LEVOTHYROXINE. [Concomitant]
     Active Substance: LEVOTHYROXINE
  19. ALLOPURINOL. [Concomitant]
     Active Substance: ALLOPURINOL
  20. TESSALON [Concomitant]
     Active Substance: BENZONATATE
  21. SUDAFED [Concomitant]
     Active Substance: PSEUDOEPHEDRINE HYDROCHLORIDE

REACTIONS (3)
  - Productive cough [Unknown]
  - Malignant neoplasm progression [Fatal]
  - Flank pain [Not Recovered/Not Resolved]

NARRATIVE: CASE EVENT DATE: 20170902
